FAERS Safety Report 5758231-4 (Version None)
Quarter: 2008Q2

REPORT INFORMATION
  Report Type: 
  Country: None (occurrence: None)
  Receive Date: 20080604
  Receipt Date: 20080530
  Transmission Date: 20081010
  Serious: Yes (Death, Hospitalization)
  Sender: FDA-Public Use
  Company Number: RU-ELI_LILLY_AND_COMPANY-RU200512000467

PATIENT
  Sex: Female

DRUGS (5)
  1. PEMETREXED [Suspect]
     Indication: BREAST CANCER
     Dosage: 3090 MG, ONCE EVERY 21 DAY
     Route: 042
     Dates: start: 20050830, end: 20051122
  2. CYCLOPHOSPHAMIDE [Suspect]
     Indication: BREAST CANCER
     Dosage: 1030 MG, ONCE EVERY 21 DAY
     Route: 042
     Dates: start: 20050830, end: 20051122
  3. FOLIC ACID [Concomitant]
     Indication: PROPHYLAXIS
  4. VITAMIN B-12 [Concomitant]
     Indication: PROPHYLAXIS
  5. DEXAMETHASONE TAB [Concomitant]
     Indication: PROPHYLAXIS

REACTIONS (3)
  - AGRANULOCYTOSIS [None]
  - MULTI-ORGAN FAILURE [None]
  - PNEUMONIA [None]
